FAERS Safety Report 20825531 (Version 1)
Quarter: 2022Q2

REPORT INFORMATION
  Report Type: Report from Study
  Country: US (occurrence: US)
  Receive Date: 20220513
  Receipt Date: 20220513
  Transmission Date: 20220721
  Serious: Yes (Death, Hospitalization)
  Sender: FDA-Public Use
  Company Number: US-MYLANLABS-2022M1034054

PATIENT
  Age: 37 Year
  Sex: Male

DRUGS (2)
  1. ACETAMINOPHEN [Suspect]
     Active Substance: ACETAMINOPHEN
     Indication: Product used for unknown indication
     Dosage: 500 DOSAGE FORM
     Route: 048
  2. FOMEPIZOLE [Suspect]
     Active Substance: FOMEPIZOLE
     Indication: Overdose
     Dosage: 15 MILLIGRAM/KILOGRAM
     Route: 065

REACTIONS (5)
  - Hepatotoxicity [Fatal]
  - Intentional overdose [Fatal]
  - Toxicity to various agents [Fatal]
  - Drug ineffective for unapproved indication [Fatal]
  - Off label use [Unknown]
